FAERS Safety Report 4494431-1 (Version None)
Quarter: 2004Q4

REPORT INFORMATION
  Report Type: 
  Country: None (occurrence: None)
  Receive Date: 20041102
  Receipt Date: 20041014
  Transmission Date: 20050328
  Serious: Yes (Hospitalization)
  Sender: FDA-Public Use
  Company Number: JP_041004843

PATIENT
  Age: 27 Year
  Sex: Female

DRUGS (2)
  1. ZYPREXA [Suspect]
  2. LIDOCAINE [Concomitant]

REACTIONS (2)
  - LONG QT SYNDROME [None]
  - VENTRICULAR TACHYCARDIA [None]
